FAERS Safety Report 5345069-5 (Version None)
Quarter: 2007Q2

REPORT INFORMATION
  Report Type: 
  Country: None (occurrence: None)
  Receive Date: 20070416
  Receipt Date: 20070215
  Transmission Date: 20071010
  Serious: Yes (Other)
  Sender: FDA-Public Use
  Company Number: IMP_2732_2007

PATIENT
  Sex: Female

DRUGS (1)
  1. BUPROPION HCL [Suspect]
     Dosage: 300 MG QDAY PO
     Route: 048
     Dates: start: 20070201

REACTIONS (1)
  - BLOOD PRESSURE INCREASED [None]
